FAERS Safety Report 7134931-9 (Version None)
Quarter: 2010Q4

REPORT INFORMATION
  Report Type: 
  Country: None (occurrence: None)
  Receive Date: 20101203
  Receipt Date: 20101122
  Transmission Date: 20110411
  Serious: Yes (Hospitalization, Other)
  Sender: FDA-Public Use
  Company Number: BR-GENENTECH-307679

PATIENT
  Sex: Female
  Weight: 58 kg

DRUGS (7)
  1. RITUXIMAB [Suspect]
     Indication: RHEUMATOID ARTHRITIS
     Dosage: UNK
     Route: 065
     Dates: start: 20080101
  2. RITUXIMAB [Suspect]
     Dosage: UNK
     Route: 065
     Dates: start: 20090101
  3. RITUXIMAB [Suspect]
     Dosage: 1000 MG, Q15D
     Route: 065
     Dates: start: 20100228, end: 20100308
  4. TANDRILAX [Suspect]
     Indication: PRODUCT USED FOR UNKNOWN INDICATION
     Dosage: UNK
     Route: 065
  5. NOVAMOX [Concomitant]
     Indication: ANTIBIOTIC THERAPY
     Dosage: UNK
  6. PLASIL [Concomitant]
     Indication: PREMEDICATION
     Dosage: UNK
  7. ARAVA [Concomitant]
     Indication: PRODUCT USED FOR UNKNOWN INDICATION
     Dosage: UNK

REACTIONS (13)
  - APPENDICITIS [None]
  - COUGH [None]
  - DIARRHOEA [None]
  - ERYTHEMA [None]
  - INFLUENZA [None]
  - MUSCLE TIGHTNESS [None]
  - NEPHROLITHIASIS [None]
  - PAIN [None]
  - PARAESTHESIA [None]
  - RENAL INJURY [None]
  - STRESS URINARY INCONTINENCE [None]
  - TENSION HEADACHE [None]
  - WEIGHT INCREASED [None]
